FAERS Safety Report 4853477-1 (Version None)
Quarter: 2005Q4

REPORT INFORMATION
  Report Type: 
  Country: None (occurrence: None)
  Receive Date: 20051212
  Receipt Date: 20051117
  Transmission Date: 20060501
  Serious: Yes (Other)
  Sender: FDA-Public Use
  Company Number: FR200511001821

PATIENT
  Age: 72 Year
  Sex: Female

DRUGS (6)
  1. FORTEO [Suspect]
     Dosage: 20 UG, DAILY (1/D), SUBCUTANEOUS
     Route: 058
     Dates: start: 20050908
  2. MYSOLIN (PRIMIDONE) [Concomitant]
  3. VASTAREL                (TRIMETAZINDINE HYDROCHLORIDE) [Concomitant]
  4. CACIT D3            (CALCIUM CARBONATE, COLECALFIEROL) [Concomitant]
  5. SOTALOL HCL [Concomitant]
  6. FORTEO PEN               (250MCG/ML) [Concomitant]

REACTIONS (2)
  - HEADACHE [None]
  - RETINAL HAEMORRHAGE [None]
